FAERS Safety Report 14908486 (Version 1)
Quarter: 2018Q2

REPORT INFORMATION
  Report Type: Spontaneous
  Country: US (occurrence: US)
  Receive Date: 20180517
  Receipt Date: 20180517
  Transmission Date: 20180711
  Serious: Yes (Other)
  Sender: FDA-Public Use
  Company Number: US-PFIZER INC-2018198593

PATIENT
  Age: 45 Year
  Sex: Female

DRUGS (1)
  1. METHOTREXATE SODIUM. [Suspect]
     Active Substance: METHOTREXATE SODIUM
     Dosage: UNK, WEEKLY (0.8 CC)
     Route: 058

REACTIONS (13)
  - Musculoskeletal stiffness [Unknown]
  - Rheumatoid arthritis [Unknown]
  - Red blood cell sedimentation rate increased [Unknown]
  - C-reactive protein increased [Unknown]
  - Arthralgia [Unknown]
  - Anti-cyclic citrullinated peptide antibody positive [Unknown]
  - Tuberculin test positive [Unknown]
  - Fatigue [Unknown]
  - Joint swelling [Unknown]
  - Rheumatoid factor positive [Unknown]
  - Feeling abnormal [Unknown]
  - Tenderness [Unknown]
  - Pain [Unknown]

NARRATIVE: CASE EVENT DATE: 200901
